FAERS Safety Report 24845331 (Version 1)
Quarter: 2025Q1

REPORT INFORMATION
  Report Type: Spontaneous
  Country: US (occurrence: None)
  Receive Date: 20250114
  Receipt Date: 20250114
  Transmission Date: 20250408
  Serious: Yes (Hospitalization)
  Sender: FDA-CTU
  Company Number: None

PATIENT
  Sex: Male

DRUGS (1)
  1. OJJAARA [Suspect]
     Active Substance: MOMELOTINIB DIHYDROCHLORIDE MONOHYDRATE
     Indication: Polycythaemia vera
     Dosage: FREQUENCY : DAILY;?
     Route: 048
     Dates: start: 20240615

REACTIONS (5)
  - Pneumonia [None]
  - Haematological infection [None]
  - Red blood cell count decreased [None]
  - Heart rate increased [None]
  - Oxygen saturation decreased [None]
